FAERS Safety Report 23596503 (Version 1)
Quarter: 2024Q1

REPORT INFORMATION
  Report Type: Spontaneous
  Country: US (occurrence: US)
  Receive Date: 20240305
  Receipt Date: 20240305
  Transmission Date: 20240409
  Serious: No
  Sender: FDA-Public Use
  Company Number: US-SA-SAC20240304000358

PATIENT
  Age: 51 Year
  Sex: Female

DRUGS (7)
  1. AUBAGIO [Suspect]
     Active Substance: TERIFLUNOMIDE
     Indication: Multiple sclerosis
     Dosage: 14 MG
     Route: 048
     Dates: start: 202306
  2. FIORINAL [Concomitant]
     Active Substance: ASPIRIN\BUTALBITAL\CAFFEINE
     Indication: Headache
     Dosage: 1 DF, Q4H
     Route: 048
  3. VITAMIN D3 [Concomitant]
     Active Substance: CHOLECALCIFEROL
     Dosage: 5000 IU, QD
     Route: 048
  4. MOTRIN [Concomitant]
     Active Substance: IBUPROFEN
     Indication: Pain
     Dosage: 1 DF, TID
     Route: 048
  5. LIDODERM [Concomitant]
     Active Substance: LIDOCAINE
     Indication: Pain
     Dosage: UNK, PRN
  6. ZOFRAN [Concomitant]
     Active Substance: ONDANSETRON HYDROCHLORIDE
     Dosage: 4 MG, Q8H
  7. PROVERA [Concomitant]
     Active Substance: MEDROXYPROGESTERONE ACETATE
     Dosage: 10 MG, QD
     Route: 048

REACTIONS (2)
  - Abnormal uterine bleeding [Not Recovered/Not Resolved]
  - Abnormal menstrual clots [Not Recovered/Not Resolved]

NARRATIVE: CASE EVENT DATE: 20231017
